FAERS Safety Report 12400243 (Version 1)
Quarter: 2016Q2

REPORT INFORMATION
  Report Type: Spontaneous
  Country: US (occurrence: None)
  Receive Date: 20160524
  Receipt Date: 20160524
  Transmission Date: 20160815
  Serious: Yes (Life-Threatening)
  Sender: FDA-Public Use
  Company Number: None

PATIENT
  Age: 20 Year
  Sex: Female
  Weight: 61.24 kg

DRUGS (4)
  1. LINZESS [Concomitant]
     Active Substance: LINACLOTIDE
  2. BIOTIN [Concomitant]
     Active Substance: BIOTIN
  3. BENADRYL [Concomitant]
     Active Substance: DIPHENHYDRAMINE HYDROCHLORIDE
  4. SOLODYN [Suspect]
     Active Substance: MINOCYCLINE HYDROCHLORIDE
     Indication: ACNE
     Route: 048
     Dates: start: 20160502, end: 20160519

REACTIONS (6)
  - Pruritus [None]
  - Eye swelling [None]
  - Skin mass [None]
  - Drug hypersensitivity [None]
  - Swelling [None]
  - Arthropod bite [None]

NARRATIVE: CASE EVENT DATE: 20160519
